FAERS Safety Report 7204561-9 (Version None)
Quarter: 2010Q4

REPORT INFORMATION
  Report Type: 
  Country: None (occurrence: None)
  Receive Date: 20101230
  Receipt Date: 20101221
  Transmission Date: 20110411
  Serious: Yes (Hospitalization)
  Sender: FDA-Public Use
  Company Number: PHHO2009JP10973

PATIENT
  Sex: Female
  Weight: 43 kg

DRUGS (11)
  1. CERTICAN [Suspect]
     Indication: RENAL TRANSPLANT
     Dosage: UNKNOWN
     Route: 048
     Dates: start: 20090606, end: 20090904
  2. NEORAL [Suspect]
     Indication: RENAL TRANSPLANT
     Dosage: 120 MG
     Route: 048
     Dates: start: 20090603
  3. SIMULECT [Suspect]
     Indication: RENAL TRANSPLANT
     Dosage: 20 MG, ONCE/SINGLE
     Route: 042
     Dates: start: 20090605, end: 20090605
  4. SIMULECT [Suspect]
     Dosage: 20 MG, ONCE/SINGLE
     Route: 042
     Dates: start: 20090606, end: 20090606
  5. PREDNISOLONE [Suspect]
     Indication: RENAL TRANSPLANT
     Dosage: 10 MG
     Route: 048
     Dates: start: 20090605
  6. BAKTAR [Concomitant]
  7. NORVASC [Concomitant]
  8. FLUVASTATIN [Concomitant]
  9. TAKEPRON [Concomitant]
  10. FERROUS CITRATE [Concomitant]
  11. CINAL [Concomitant]

REACTIONS (5)
  - BACK PAIN [None]
  - NEPHROSCLEROSIS [None]
  - PROTEINURIA [None]
  - PYREXIA [None]
  - RENAL CYST INFECTION [None]
